FAERS Safety Report 5581335-6 (Version None)
Quarter: 2008Q1

REPORT INFORMATION
  Report Type: 
  Country: None (occurrence: None)
  Receive Date: 20080104
  Receipt Date: 20071228
  Transmission Date: 20080703
  Serious: Yes (Hospitalization)
  Sender: FDA-Public Use
  Company Number: PHNU2007DE04281

PATIENT
  Sex: Male

DRUGS (13)
  1. NORVASC [Concomitant]
  2. TOREM [Concomitant]
  3. RAMIPRIL [Concomitant]
  4. CARMEN [Concomitant]
  5. BLOPRESS [Concomitant]
  6. DILZEM [Concomitant]
  7. INSPRA [Concomitant]
  8. ACETYLSALICYLIC ACID SRT [Concomitant]
  9. PRAVASTATIN SODIUM [Concomitant]
  10. THIOCTACID [Concomitant]
  11. SUSTIVA [Concomitant]
  12. KIVEXA [Concomitant]
  13. RASILEZ [Suspect]

REACTIONS (5)
  - BLOOD CREATININE INCREASED [None]
  - BLOOD UREA INCREASED [None]
  - DEHYDRATION [None]
  - PNEUMONIA [None]
  - RENAL FAILURE [None]
